FAERS Safety Report 9460330 (Version 1)
Quarter: 2013Q3

REPORT INFORMATION
  Report Type: Report from Study
  Country: DE (occurrence: DE)
  Receive Date: 20130815
  Receipt Date: 20130815
  Transmission Date: 20140515
  Serious: Yes (Hospitalization)
  Sender: FDA-Public Use
  Company Number: DE-JNJFOC-20130804476

PATIENT
  Age: 44 Year
  Sex: Male
  Weight: 69 kg

DRUGS (5)
  1. REMICADE [Suspect]
     Indication: CROHN^S DISEASE
     Route: 042
     Dates: start: 20130130
  2. VITAMIN A [Concomitant]
     Route: 065
     Dates: start: 20130130
  3. VITAMIN D [Concomitant]
     Route: 065
     Dates: start: 20130130
  4. E VITAMIN [Concomitant]
     Route: 065
     Dates: start: 20130130
  5. VITAMIN K [Concomitant]
     Route: 065
     Dates: start: 20130130

REACTIONS (1)
  - Psychotic disorder [Not Recovered/Not Resolved]
